FAERS Safety Report 19671994 (Version 1)
Quarter: 2021Q3

REPORT INFORMATION
  Report Type: Other
  Country: US (occurrence: US)
  Receive Date: 20210806
  Receipt Date: 20210806
  Transmission Date: 20211014
  Serious: Yes (Other)
  Sender: FDA-Public Use
  Company Number: US-APOTEX-2021AP031609

PATIENT
  Age: 36 Year
  Sex: Female

DRUGS (2)
  1. ZANTAC [Suspect]
     Active Substance: RANITIDINE HYDROCHLORIDE
     Indication: EROSIVE OESOPHAGITIS
     Dosage: DAILY
     Route: 065
     Dates: start: 198201, end: 201001
  2. RANITIDINE TABLETS [Suspect]
     Active Substance: RANITIDINE HYDROCHLORIDE
     Indication: EROSIVE OESOPHAGITIS
     Dosage: DAILY
     Route: 065
     Dates: start: 198201, end: 201001

REACTIONS (6)
  - Lymphoedema [Unknown]
  - Lymphadenopathy [Unknown]
  - Breast cancer [Not Recovered/Not Resolved]
  - Surgery [Unknown]
  - Skin cancer [Not Recovered/Not Resolved]
  - Breast cancer [Not Recovered/Not Resolved]

NARRATIVE: CASE EVENT DATE: 19880101
